FAERS Safety Report 7645155-0 (Version None)
Quarter: 2011Q3

REPORT INFORMATION
  Report Type: 
  Country: None (occurrence: None)
  Receive Date: 20110729
  Receipt Date: 20110719
  Transmission Date: 20111222
  Serious: Yes (Other)
  Sender: FDA-Public Use
  Company Number: US-JNJFOC-20110708699

PATIENT
  Age: 23 Year
  Sex: Female
  Weight: 44.45 kg

DRUGS (1)
  1. NEUTROGENA T/GEL THERAPEUTIC SHAMPOO [Suspect]
     Indication: ECZEMA
     Dosage: PUMP FULL
     Route: 061
     Dates: start: 20110710, end: 20110711

REACTIONS (5)
  - OFF LABEL USE [None]
  - BLISTER [None]
  - HAIR DISORDER [None]
  - EXPIRED DRUG ADMINISTERED [None]
  - THERAPEUTIC RESPONSE UNEXPECTED [None]
